FAERS Safety Report 22045840 (Version 1)
Quarter: 2023Q1

REPORT INFORMATION
  Report Type: Spontaneous
  Country: US (occurrence: None)
  Receive Date: 20230227
  Receipt Date: 20230227
  Transmission Date: 20230418
  Serious: No
  Sender: FDA-Public Use
  Company Number: None

PATIENT
  Age: 32 Year
  Sex: Female

DRUGS (1)
  1. VEMLIDY [Suspect]
     Active Substance: TENOFOVIR ALAFENAMIDE FUMARATE
     Dosage: FREQUENCY : DAILY;?
     Route: 048
     Dates: start: 202107

REACTIONS (1)
  - Invasive ductal breast carcinoma [None]

NARRATIVE: CASE EVENT DATE: 20230227
